FAERS Safety Report 4983556-X (Version None)
Quarter: 2006Q2

REPORT INFORMATION
  Report Type: 
  Country: None (occurrence: None)
  Receive Date: 20060426
  Receipt Date: 20060418
  Transmission Date: 20061013
  Serious: Yes (Hospitalization)
  Sender: FDA-Public Use
  Company Number: US-JNJFOC-20060404732

PATIENT
  Sex: Male
  Weight: 122.47 kg

DRUGS (7)
  1. DURAGESIC-100 [Suspect]
     Route: 062
  2. TOPROL-XL [Concomitant]
     Indication: BLOOD PRESSURE
     Route: 048
  3. LIPITOR [Concomitant]
     Route: 048
  4. PLAVIX [Concomitant]
     Route: 048
  5. LEXAPRO [Concomitant]
     Indication: STRESS
     Route: 048
  6. NORCO [Concomitant]
  7. NORCO [Concomitant]
     Indication: PAIN
     Dosage: 10MG/325MG EVERY 6 HOURS FOR PAIN

REACTIONS (5)
  - CEREBROVASCULAR ACCIDENT [None]
  - DYSPEPSIA [None]
  - HEART RATE ABNORMAL [None]
  - PHARMACEUTICAL PRODUCT COMPLAINT [None]
  - THERAPEUTIC RESPONSE DECREASED [None]
